FAERS Safety Report 10149885 (Version 1)
Quarter: 2014Q2

REPORT INFORMATION
  Report Type: Spontaneous
  Country: US (occurrence: None)
  Receive Date: 20140501
  Receipt Date: 20140501
  Transmission Date: 20141212
  Serious: Yes (Other)
  Sender: FDA-Public Use
  Company Number: None

PATIENT
  Sex: Female

DRUGS (1)
  1. SUBOXONE [Suspect]
     Indication: DEPENDENCE
     Dosage: .. MG,QD, PO/SL
     Dates: start: 2013

REACTIONS (4)
  - Palpitations [None]
  - Unevaluable event [None]
  - Dyspnoea [None]
  - Disorientation [None]
